FAERS Safety Report 9479110 (Version 2)
Quarter: 2013Q4

REPORT INFORMATION
  Report Type: Spontaneous
  Country: FR (occurrence: FR)
  Receive Date: 20130827
  Receipt Date: 20131122
  Transmission Date: 20140711
  Serious: Yes (Hospitalization)
  Sender: FDA-Public Use
  Company Number: FR-GLAXOSMITHKLINE-B0915326A

PATIENT
  Age: 64 Year
  Sex: Male

DRUGS (7)
  1. WELLVONE [Suspect]
     Indication: PRODUCT USED FOR UNKNOWN INDICATION
     Route: 048
     Dates: start: 201307, end: 20130721
  2. NEORAL [Concomitant]
  3. ZELITREX [Concomitant]
  4. CARVEDILOL [Concomitant]
  5. COVERSYL [Concomitant]
  6. CRESTOR [Concomitant]
  7. KARDEGIC [Concomitant]

REACTIONS (10)
  - Stevens-Johnson syndrome [Recovering/Resolving]
  - Pyrexia [Recovering/Resolving]
  - Mouth ulceration [Recovering/Resolving]
  - Skin mass [Recovering/Resolving]
  - Rash macular [Recovering/Resolving]
  - Chills [Recovered/Resolved]
  - Hypoventilation [Recovered/Resolved]
  - Purulence [Recovering/Resolving]
  - Cardio-respiratory arrest [Recovered/Resolved]
  - Lichenoid keratosis [Recovering/Resolving]
